FAERS Safety Report 9117103 (Version 4)
Quarter: 2016Q3

REPORT INFORMATION
  Report Type: Spontaneous
  Country: US (occurrence: US)
  Receive Date: 20130225
  Receipt Date: 20160722
  Transmission Date: 20161109
  Serious: Yes (Hospitalization, Other)
  Sender: FDA-Public Use
  Company Number: US-BAYER-2013-021007

PATIENT
  Age: 22 Year
  Sex: Female
  Weight: 94.79 kg

DRUGS (3)
  1. HYDROCODONE [Concomitant]
     Active Substance: HYDROCODONE
     Dosage: UNK
     Dates: start: 2011, end: 2014
  2. MIRENA [Suspect]
     Active Substance: LEVONORGESTREL
     Indication: CONTRACEPTION
     Dosage: 20 MCG/24HR, CONT
     Route: 015
     Dates: start: 20120309, end: 20130418
  3. VICODIN [Concomitant]
     Active Substance: ACETAMINOPHEN\HYDROCODONE BITARTRATE
     Dosage: UNK
     Dates: start: 2011, end: 2014

REACTIONS (22)
  - Device dislocation [None]
  - Depression [None]
  - Anxiety [None]
  - Memory impairment [None]
  - Abdominal pain lower [Not Recovered/Not Resolved]
  - Device issue [None]
  - Uterine perforation [None]
  - Dizziness [None]
  - Headache [None]
  - Disturbance in attention [None]
  - Hunger [None]
  - Fatigue [None]
  - Musculoskeletal chest pain [None]
  - Back pain [None]
  - Crying [None]
  - Genital haemorrhage [Not Recovered/Not Resolved]
  - Visual acuity reduced [None]
  - Vaginal infection [None]
  - Abdominal pain lower [None]
  - Chest pain [None]
  - Medical device pain [None]
  - Depressed mood [None]

NARRATIVE: CASE EVENT DATE: 201212
